FAERS Safety Report 4431487-6 (Version None)
Quarter: 2004Q3

REPORT INFORMATION
  Report Type: 
  Country: None (occurrence: None)
  Receive Date: 20040817
  Receipt Date: 20040804
  Transmission Date: 20050211
  Serious: Yes (Hospitalization)
  Sender: FDA-Public Use
  Company Number: 9827653

PATIENT
  Age: 74 Year
  Sex: Female

DRUGS (9)
  1. ZOLOFT [Suspect]
     Indication: DEPRESSION
     Dosage: 50 MG (50 MG, 1 IN 1 D), ORAL
     Route: 048
     Dates: start: 19950301
  2. CAPTOPRIL [Concomitant]
  3. MONOTREAN (PAPAVERINE, QUININE) [Concomitant]
  4. AMILORIDE W/HYDROCHLORTHIAZIDE (AMILORIDE HYDROCHLOROTHIAZIDE) [Concomitant]
  5. DILTIAZEM [Concomitant]
  6. RANITIDINE [Concomitant]
  7. GINKGO BILOBA EXTRACT (GINKGO BILOBA EXTRACT) [Concomitant]
  8. SPIRONOLACTONE [Concomitant]
  9. AMLODIPINE [Concomitant]

REACTIONS (4)
  - ANGINA PECTORIS [None]
  - CORONARY ARTERY SURGERY [None]
  - INFECTION [None]
  - MITRAL VALVE DISEASE [None]
